FAERS Safety Report 17901572 (Version 1)
Quarter: 2020Q2

REPORT INFORMATION
  Report Type: Spontaneous
  Country: US (occurrence: US)
  Receive Date: 20200616
  Receipt Date: 20200616
  Transmission Date: 20200714
  Serious: Yes (Hospitalization)
  Sender: FDA-Public Use
  Company Number: US-GILEAD-2020-0471292

PATIENT
  Age: 51 Year
  Sex: Male
  Weight: 143 kg

DRUGS (3)
  1. REMDESIVIR. [Suspect]
     Active Substance: REMDESIVIR
     Indication: COVID-19
     Dosage: UNK
     Route: 065
     Dates: start: 20200604, end: 20200609
  2. CCP [Concomitant]
  3. TOCILIZUMAB. [Concomitant]
     Active Substance: TOCILIZUMAB
     Route: 065

REACTIONS (1)
  - Hypermagnesaemia [Unknown]

NARRATIVE: CASE EVENT DATE: 20200607
